FAERS Safety Report 18519475 (Version 2)
Quarter: 2020Q4

REPORT INFORMATION
  Report Type: Report from Study
  Country: FR (occurrence: FR)
  Receive Date: 20201118
  Receipt Date: 20201120
  Transmission Date: 20210114
  Serious: Yes (Death, Hospitalization, Other)
  Sender: FDA-Public Use
  Company Number: FR-GILEAD-2020-0494598

PATIENT
  Age: 89 Year
  Sex: Male
  Weight: 80 kg

DRUGS (19)
  1. REMDESIVIR. [Suspect]
     Active Substance: REMDESIVIR
     Indication: COVID-19
     Dosage: 200 MG
     Route: 042
     Dates: start: 20200724, end: 20200724
  2. CETIRIZINE [Concomitant]
     Active Substance: CETIRIZINE HYDROCHLORIDE
  3. DEXAMETHASONE. [Concomitant]
     Active Substance: DEXAMETHASONE
  4. OMEPRAZOLE. [Concomitant]
     Active Substance: OMEPRAZOLE
  5. REMDESIVIR. [Suspect]
     Active Substance: REMDESIVIR
     Dosage: 100 MG, QD
     Route: 042
     Dates: start: 20200725
  6. LOVENOX [Concomitant]
     Active Substance: ENOXAPARIN SODIUM
  7. METFORMIN [Concomitant]
     Active Substance: METFORMIN HYDROCHLORIDE
  8. OXYGEN. [Concomitant]
     Active Substance: OXYGEN
     Dosage: UNK
     Dates: start: 20200724
  9. JANUMET [Concomitant]
     Active Substance: METFORMIN HYDROCHLORIDE\SITAGLIPTIN PHOSPHATE
  10. LEVOTHYROX [Concomitant]
     Active Substance: LEVOTHYROXINE
  11. ROVAMYCINE [SPIRAMYCIN] [Concomitant]
     Active Substance: SPIRAMYCIN
  12. JOSIR [Concomitant]
     Active Substance: TAMSULOSIN
  13. RESITUNE [Concomitant]
     Active Substance: ASPIRIN
  14. NOVONORM [Concomitant]
     Active Substance: REPAGLINIDE
  15. INEGY [Concomitant]
     Active Substance: EZETIMIBE\SIMVASTATIN
  16. KARDEGIC [Concomitant]
     Active Substance: ASPIRIN DL-LYSINE
  17. CLAFORAN [Concomitant]
     Active Substance: CEFOTAXIME SODIUM
  18. NEBIVOLOL. [Concomitant]
     Active Substance: NEBIVOLOL
  19. SPIRIVA [Concomitant]
     Active Substance: TIOTROPIUM BROMIDE MONOHYDRATE

REACTIONS (3)
  - Coagulation factor V level decreased [Fatal]
  - Blood lactate dehydrogenase increased [Fatal]
  - Prothrombin level decreased [Fatal]

NARRATIVE: CASE EVENT DATE: 202007
